FAERS Safety Report 14693036 (Version 1)
Quarter: 2018Q1

REPORT INFORMATION
  Report Type: Spontaneous
  Country: FR (occurrence: FR)
  Receive Date: 20180329
  Receipt Date: 20180329
  Transmission Date: 20180509
  Serious: Yes (Other)
  Sender: FDA-Public Use
  Company Number: FR-MERCK KGAA-2044755

PATIENT
  Age: 57 Year
  Sex: Female

DRUGS (1)
  1. NOVOTHYROX [Suspect]
     Active Substance: LEVOTHYROXINE SODIUM
     Indication: HYPOTHYROIDISM
     Dates: start: 201705, end: 2017

REACTIONS (37)
  - Pharyngeal oedema [Recovering/Resolving]
  - Myalgia [Recovering/Resolving]
  - Hyperhidrosis [Recovering/Resolving]
  - Feeling jittery [Recovering/Resolving]
  - Gait disturbance [Recovering/Resolving]
  - Headache [Recovering/Resolving]
  - Vision blurred [Recovering/Resolving]
  - Impatience [Recovering/Resolving]
  - Asthenia [Recovering/Resolving]
  - Aggression [Recovering/Resolving]
  - Fatigue [Recovering/Resolving]
  - Renal pain [Recovering/Resolving]
  - Balance disorder [Recovering/Resolving]
  - Discomfort [Recovering/Resolving]
  - Negative thoughts [Recovered/Resolved]
  - Dissociation [Recovering/Resolving]
  - Pain [Recovering/Resolving]
  - Abdominal pain upper [Recovering/Resolving]
  - Palpitations [Recovering/Resolving]
  - Dry mouth [Recovering/Resolving]
  - Abnormal faeces [Recovering/Resolving]
  - Abulia [Recovering/Resolving]
  - Personal relationship issue [Recovering/Resolving]
  - Weight increased [Recovering/Resolving]
  - Somnolence [Recovering/Resolving]
  - Nervousness [Recovering/Resolving]
  - Mood altered [Recovering/Resolving]
  - Diabetes mellitus inadequate control [Recovering/Resolving]
  - Blood thyroid stimulating hormone increased [Not Recovered/Not Resolved]
  - Respiration abnormal [Recovering/Resolving]
  - Pruritus [Recovering/Resolving]
  - Middle insomnia [Recovering/Resolving]
  - Alopecia [Recovering/Resolving]
  - Disturbance in attention [Recovering/Resolving]
  - Gastrointestinal disorder [Recovering/Resolving]
  - Social avoidant behaviour [Recovering/Resolving]
  - Breast swelling [Recovering/Resolving]

NARRATIVE: CASE EVENT DATE: 2017
